FAERS Safety Report 6329571-5 (Version None)
Quarter: 2009Q3

REPORT INFORMATION
  Report Type: 
  Country: None (occurrence: None)
  Receive Date: 20090821
  Receipt Date: 20090107
  Transmission Date: 20100115
  Serious: Yes (Death)
  Sender: FDA-Public Use
  Company Number: 2009-0021039

PATIENT
  Age: 37 Year
  Sex: Female

DRUGS (3)
  1. VISTIDE [Suspect]
     Indication: CYTOMEGALOVIRUS CHORIORETINITIS
     Dosage: 2 MG/KG, 1 IN 1 WK 5 MG/KG, 1 IN 1 WK 1 MG/KG, 1 IN 1 WK
  2. VISTIDE [Suspect]
     Indication: CYTOMEGALOVIRUS CHORIORETINITIS
     Dosage: 2 MG/KG, 1 IN 1 WK 5 MG/KG, 1 IN 1 WK 1 MG/KG, 1 IN 1 WK
  3. VISTIDE [Suspect]
     Indication: CYTOMEGALOVIRUS CHORIORETINITIS
     Dosage: 2 MG/KG, 1 IN 1 WK 5 MG/KG, 1 IN 1 WK 1 MG/KG, 1 IN 1 WK

REACTIONS (1)
  - NEPHROPATHY TOXIC [None]
